FAERS Safety Report 10592384 (Version 1)
Quarter: 2014Q4

REPORT INFORMATION
  Report Type: Spontaneous
  Country: CA (occurrence: None)
  Receive Date: 20141117
  Receipt Date: 20141117
  Transmission Date: 20150529
  Serious: Yes (Other)
  Sender: FDA-Public Use
  Company Number: AMAG201400423

PATIENT
  Age: 43 Year
  Sex: Female
  Weight: 42 kg

DRUGS (9)
  1. TPN (NICOTINAMIDE, PYRIDOXINE HYDROCHLORIDE, TYROSINE) [Concomitant]
  2. ARANESP [Concomitant]
     Active Substance: DARBEPOETIN ALFA
  3. ONE ALPHA (ALFACALCIDOL) [Concomitant]
  4. URSODEOXYCHOLIC ACID (URSODEOXYCHOLIC ACID) [Concomitant]
  5. VITAMIN B COMPLEX WITH C (ASCORBIC ACID, CALCIUM PANTOTHENATE, CYANOCOBALAMIN, NICOTINAMIDE, PYRIDOXINE HYDROCHLORIDE, RIBOFLAVIN, THIAMINE MONONITRATE) [Concomitant]
  6. FERAHEME [Suspect]
     Active Substance: FERUMOXYTOL NON-STOICHIOMETRIC MAGNETITE
     Route: 042
  7. FERROUS SULPHATE (FERROUS SULPHATE) [Concomitant]
  8. PHENYTOIN (PHENYTOIN) [Concomitant]
     Active Substance: PHENYTOIN
  9. VITAMIN D [Concomitant]
     Active Substance: CHOLECALCIFEROL

REACTIONS (4)
  - Dizziness [None]
  - Dyspepsia [None]
  - Chest pain [None]
  - Erythema [None]
